FAERS Safety Report 13292353 (Version 1)
Quarter: 2017Q1

REPORT INFORMATION
  Report Type: Spontaneous
  Country: US (occurrence: US)
  Receive Date: 20170302
  Receipt Date: 20170302
  Transmission Date: 20170428
  Serious: Yes (Hospitalization)
  Sender: FDA-Public Use
  Company Number: None

PATIENT
  Age: 37 Year
  Sex: Male

DRUGS (11)
  1. HYDROMORPHONE [Concomitant]
     Active Substance: HYDROMORPHONE
  2. HYDROXYUREA. [Concomitant]
     Active Substance: HYDROXYUREA
  3. DOXYCYCLINE. [Concomitant]
     Active Substance: DOXYCYCLINE
  4. FOLIC ACID. [Concomitant]
     Active Substance: FOLIC ACID
  5. XARELTO [Concomitant]
     Active Substance: RIVAROXABAN
  6. SILDENAFIL. [Concomitant]
     Active Substance: SILDENAFIL
  7. DEFERASIROX [Concomitant]
     Active Substance: DEFERASIROX
  8. OPSUMIT [Suspect]
     Active Substance: MACITENTAN
     Indication: PULMONARY EMBOLISM
     Route: 048
     Dates: start: 201510
  9. MORPHINE [Concomitant]
     Active Substance: MORPHINE
  10. PROMETHAZINE [Concomitant]
     Active Substance: PROMETHAZINE\PROMETHAZINE HYDROCHLORIDE
  11. FLUOXETINE [Concomitant]
     Active Substance: FLUOXETINE HYDROCHLORIDE

REACTIONS (2)
  - Abscess neck [None]
  - Local swelling [None]

NARRATIVE: CASE EVENT DATE: 20170204
